FAERS Safety Report 6579794-5 (Version None)
Quarter: 2010Q1

REPORT INFORMATION
  Report Type: 
  Country: None (occurrence: None)
  Receive Date: 20100212
  Receipt Date: 20100201
  Transmission Date: 20100710
  Serious: Yes (Hospitalization)
  Sender: FDA-Public Use
  Company Number: US-BRACCO-003858

PATIENT
  Age: 73 Year
  Sex: Female

DRUGS (4)
  1. ISOVUE-128 [Suspect]
     Indication: CATHETERISATION CARDIAC
     Route: 042
     Dates: start: 20091208, end: 20091208
  2. ISOVUE-128 [Suspect]
     Indication: DYSPNOEA
     Route: 042
     Dates: start: 20091208, end: 20091208
  3. LASIX [Concomitant]
  4. NORVASC [Concomitant]

REACTIONS (1)
  - RENAL FAILURE [None]
